FAERS Safety Report 8279010-2 (Version None)
Quarter: 2012Q2

REPORT INFORMATION
  Report Type: 
  Country: None (occurrence: None)
  Receive Date: 20120412
  Receipt Date: 20111213
  Transmission Date: 20120825
  Serious: No
  Sender: FDA-Public Use
  Company Number: US-ASTRAZENECA-2011SE75685

PATIENT
  Age: 59 Year
  Sex: Female

DRUGS (7)
  1. GABAPENTIN [Concomitant]
     Indication: PAIN
  2. ALBUTEROL [Concomitant]
     Indication: ASTHMA
  3. LOSARTAN POTASSIUM [Concomitant]
  4. ADVAIR DISKUS 100/50 [Concomitant]
     Indication: ASTHMA
  5. TIMOLOL MALEATE [Concomitant]
  6. NEXIUM [Suspect]
     Route: 048
  7. ATENOLOL [Concomitant]

REACTIONS (12)
  - FATIGUE [None]
  - HYPERTENSION [None]
  - ACTIVITIES OF DAILY LIVING IMPAIRED [None]
  - SLEEP DISORDER [None]
  - DRUG INEFFECTIVE [None]
  - ASTHMA [None]
  - GLAUCOMA [None]
  - GASTROOESOPHAGEAL REFLUX DISEASE [None]
  - PAIN [None]
  - MYCOPLASMA INFECTION [None]
  - COUGH [None]
  - DYSPHONIA [None]
